FAERS Safety Report 5386974-3 (Version None)
Quarter: 2007Q3

REPORT INFORMATION
  Report Type: 
  Country: None (occurrence: None)
  Receive Date: 20070713
  Receipt Date: 20070703
  Transmission Date: 20080115
  Serious: Yes (Hospitalization, Disabling)
  Sender: FDA-Public Use
  Company Number: GB-PFIZER INC-2007055289

PATIENT
  Age: 77 Year
  Sex: Male

DRUGS (10)
  1. LIPITOR [Suspect]
     Route: 048
  2. HYPNOTICS AND SEDATIVES [Concomitant]
  3. FERROUS SULFATE TAB [Concomitant]
  4. AMILORIDE HYDROCHLORIDE [Concomitant]
  5. PARACETAMOL [Concomitant]
  6. WARFARIN SODIUM [Concomitant]
  7. ASPIRIN [Concomitant]
  8. ALL OTHER THERAPEUTIC PRODUCTS [Concomitant]
  9. FRUSEMIDE [Concomitant]
  10. BETA BLOCKING AGENTS [Concomitant]

REACTIONS (4)
  - ARTHRALGIA [None]
  - ARTHRITIS [None]
  - MOBILITY DECREASED [None]
  - PAIN IN EXTREMITY [None]
